FAERS Safety Report 15774992 (Version 1)
Quarter: 2018Q4

REPORT INFORMATION
  Report Type: Spontaneous
  Country: US (occurrence: US)
  Receive Date: 20181230
  Receipt Date: 20181230
  Transmission Date: 20190205
  Serious: No
  Sender: FDA-Public Use
  Company Number: US-JNJFOC-20181200131

PATIENT
  Sex: Male
  Weight: 56.25 kg

DRUGS (2)
  1. CONCERTA [Suspect]
     Active Substance: METHYLPHENIDATE HYDROCHLORIDE
     Indication: ATTENTION DEFICIT/HYPERACTIVITY DISORDER
     Route: 048
  2. CONCERTA [Suspect]
     Active Substance: METHYLPHENIDATE HYDROCHLORIDE
     Indication: ATTENTION DEFICIT/HYPERACTIVITY DISORDER
     Dosage: 18MG AND 27 MG
     Route: 048

REACTIONS (3)
  - Psychomotor hyperactivity [Not Recovered/Not Resolved]
  - Abnormal behaviour [Not Recovered/Not Resolved]
  - Drug effect decreased [Unknown]
